FAERS Safety Report 8337508-2 (Version None)
Quarter: 2012Q2

REPORT INFORMATION
  Report Type: 
  Country: None (occurrence: None)
  Receive Date: 20120504
  Receipt Date: 20120412
  Transmission Date: 20120825
  Serious: Yes (Other)
  Sender: FDA-Public Use
  Company Number: FR-TEVA-333547ISR

PATIENT
  Sex: Female

DRUGS (6)
  1. PIROXICAM [Suspect]
     Indication: BACK PAIN
     Dosage: FREQUENCY: ONCE
     Route: 058
     Dates: start: 20120321, end: 20120321
  2. MESOCAINE [Concomitant]
     Dosage: FREQUENCY: ONCE
     Dates: start: 20120321, end: 20120321
  3. MESOCAINE [Concomitant]
     Indication: BACK PAIN
     Dosage: FREQUENCY: ONCE
     Dates: start: 20120321, end: 20120321
  4. ACETAMINOPHEN [Concomitant]
  5. CORDARONE [Concomitant]
     Indication: ARRHYTHMIA
     Dates: start: 20090101
  6. TANAKAN [Concomitant]

REACTIONS (3)
  - BLOOD PRESSURE INCREASED [None]
  - INCORRECT ROUTE OF DRUG ADMINISTRATION [None]
  - OFF LABEL USE [None]
